FAERS Safety Report 12764251 (Version 1)
Quarter: 2016Q3

REPORT INFORMATION
  Report Type: Spontaneous
  Country: GB (occurrence: GB)
  Receive Date: 20160920
  Receipt Date: 20160920
  Transmission Date: 20161109
  Serious: Yes (Hospitalization)
  Sender: FDA-Public Use
  Company Number: GB-TEVA-692697ACC

PATIENT
  Age: 40 Year
  Sex: Female
  Weight: 76.2 kg

DRUGS (5)
  1. OLANZAPINE. [Suspect]
     Active Substance: OLANZAPINE
     Indication: ANXIETY
     Route: 048
     Dates: start: 200510, end: 201604
  2. DIAZEPAM. [Concomitant]
     Active Substance: DIAZEPAM
  3. MIRTAZAPINE. [Concomitant]
     Active Substance: MIRTAZAPINE
  4. VENLAFAXINE [Concomitant]
     Active Substance: VENLAFAXINE HYDROCHLORIDE
  5. PROPRANOLOL [Concomitant]
     Active Substance: PROPRANOLOL\PROPRANOLOL HYDROCHLORIDE

REACTIONS (9)
  - Suicidal ideation [Recovered/Resolved with Sequelae]
  - Withdrawal syndrome [Unknown]
  - Insomnia [Unknown]
  - Agoraphobia [Recovered/Resolved]
  - Tardive dyskinesia [Recovered/Resolved]
  - Anxiety [Recovered/Resolved]
  - Suicide attempt [Unknown]
  - Intentional overdose [Unknown]
  - Depression [Recovered/Resolved]

NARRATIVE: CASE EVENT DATE: 200510
